FAERS Safety Report 9592909 (Version 2)
Quarter: 2013Q4

REPORT INFORMATION
  Report Type: Spontaneous
  Country: US (occurrence: US)
  Receive Date: 20131004
  Receipt Date: 20131004
  Transmission Date: 20140711
  Serious: No
  Sender: FDA-Public Use
  Company Number: US-B.I. PHARMACEUTICALS,INC./RIDGEFIELD-2013-BI-26296BP

PATIENT
  Age: 71 Year
  Sex: Female
  Weight: 84.37 kg

DRUGS (6)
  1. DULCOLAX TABLETS [Suspect]
     Indication: CONSTIPATION
     Route: 048
     Dates: start: 20130724, end: 20130826
  2. NEXIUM [Concomitant]
     Indication: REFLUX GASTRITIS
     Route: 048
  3. DILTIAZEM 24 HR ER [Concomitant]
     Indication: HYPERTENSION
     Route: 048
  4. HCTZ [Concomitant]
     Indication: HYPERTENSION
     Route: 048
  5. LESCOL [Concomitant]
     Indication: HYPERCHOLESTEROLAEMIA
  6. ASA [Concomitant]
     Indication: PROPHYLAXIS

REACTIONS (7)
  - Muscle spasms [Recovered/Resolved]
  - Muscle spasms [Not Recovered/Not Resolved]
  - Diarrhoea [Recovered/Resolved]
  - Diarrhoea [Recovered/Resolved]
  - Nausea [Not Recovered/Not Resolved]
  - Retching [Recovered/Resolved]
  - Vomiting [Recovered/Resolved]
